FAERS Safety Report 10767096 (Version 1)
Quarter: 2015Q1

REPORT INFORMATION
  Report Type: Spontaneous
  Country: US (occurrence: US)
  Receive Date: 20150205
  Receipt Date: 20150205
  Transmission Date: 20150721
  Serious: Yes (Hospitalization)
  Sender: FDA-Public Use
  Company Number: US-UNITED THERAPEUTICS-UNT-2015-001127

PATIENT
  Age: 53 Year
  Sex: Female
  Weight: 87.7 kg

DRUGS (1)
  1. TYVASO [Suspect]
     Active Substance: TREPROSTINIL
     Indication: PULMONARY ARTERIAL HYPERTENSION
     Dosage: 18-54 MCG, QID
     Dates: start: 20130516

REACTIONS (5)
  - Chronic obstructive pulmonary disease [Unknown]
  - Pneumonia [Unknown]
  - Pulmonary arterial hypertension [Unknown]
  - Asthma [Unknown]
  - Fluid retention [Unknown]

NARRATIVE: CASE EVENT DATE: 201411
